FAERS Safety Report 4332144-7 (Version None)
Quarter: 2004Q2

REPORT INFORMATION
  Report Type: 
  Country: None (occurrence: None)
  Receive Date: 20040401
  Receipt Date: 20040401
  Transmission Date: 20050107
  Serious: Yes (Other)
  Sender: FDA-Public Use
  Company Number: None

PATIENT
  Sex: Female
  Weight: 60 kg

DRUGS (11)
  1. TACROLIMUS INJECTION [Suspect]
     Indication: RENAL TRANSPLANT
     Dates: start: 20040107, end: 20040107
  2. COUMADIN [Concomitant]
  3. IMODIUM [Concomitant]
  4. METOPROLOL [Concomitant]
  5. PROTONIX [Concomitant]
  6. PREDNISONE [Concomitant]
  7. CELLCEPT [Concomitant]
  8. COZAAR [Concomitant]
  9. FOSAMAX [Concomitant]
  10. CALCIUM [Concomitant]
  11. VITAMIN D [Concomitant]

REACTIONS (1)
  - RASH ERYTHEMATOUS [None]
